FAERS Safety Report 9659210 (Version 2)
Quarter: 2013Q4

REPORT INFORMATION
  Report Type: Spontaneous
  Country: US (occurrence: US)
  Receive Date: 20131031
  Receipt Date: 20131111
  Transmission Date: 20140711
  Serious: Yes (Other)
  Sender: FDA-Public Use
  Company Number: US-DRREDDYS-USA/USA/13/0035228

PATIENT
  Age: 31 Year
  Sex: Male
  Weight: 75.9 kg

DRUGS (22)
  1. RISPERIDONE TABLETS [Suspect]
     Indication: ABNORMAL BEHAVIOUR
     Dosage: 2 MG AT BEDTIME
     Route: 065
     Dates: start: 2000, end: 201109
  2. RISPERIDONE TABLETS [Interacting]
     Dosage: MAXIMUM TOTAL DAILY DOSE OF 4 MG
     Route: 065
  3. RISPERIDONE TABLETS [Interacting]
     Route: 065
  4. RISPERIDONE TABLETS [Interacting]
     Dosage: MAXIMUM DAILY DOSE OF 4 MG
     Route: 065
  5. RISPERIDONE TABLETS [Interacting]
     Dosage: MAXIMUM DAILY DOSE OF 6 MG
     Route: 065
  6. CHLORPROMAZINE [Interacting]
     Indication: PRODUCT USED FOR UNKNOWN INDICATION
     Route: 065
  7. CHLORPROMAZINE [Interacting]
     Route: 065
  8. CHLORPROMAZINE [Interacting]
     Route: 065
  9. CLOMIPRAMINE [Interacting]
     Indication: OBSESSIVE-COMPULSIVE DISORDER
     Dosage: MAXIMUM DAILY DOSE OF 300 MG
     Route: 065
  10. CLOMIPRAMINE [Interacting]
     Route: 065
  11. CLOMIPRAMINE [Interacting]
     Route: 065
  12. CLOMIPRAMINE [Interacting]
     Dosage: 200 MG DAILY AT BEDTIME
     Route: 065
  13. CLOMIPRAMINE [Interacting]
     Dosage: 150 MG DAILY AT BEDTIME
     Route: 065
  14. DIVALPROEX SODIUM [Concomitant]
     Indication: PRODUCT USED FOR UNKNOWN INDICATION
     Route: 065
  15. QUETIAPINE FUMARATE TABLETS [Concomitant]
     Indication: PRODUCT USED FOR UNKNOWN INDICATION
     Route: 065
  16. ATENOLOL [Concomitant]
     Indication: PRODUCT USED FOR UNKNOWN INDICATION
     Route: 065
  17. ATENOLOL [Concomitant]
     Route: 065
  18. DOCUSATE [Concomitant]
     Indication: PRODUCT USED FOR UNKNOWN INDICATION
     Route: 065
  19. GLATIRAMER [Concomitant]
     Indication: PRODUCT USED FOR UNKNOWN INDICATION
     Route: 065
  20. HYDROCHLOROTHIAZIDE [Concomitant]
     Indication: PRODUCT USED FOR UNKNOWN INDICATION
     Route: 065
  21. HYDROCHLOROTHIAZIDE [Concomitant]
     Route: 065
  22. MECLIZINE [Concomitant]
     Indication: PRODUCT USED FOR UNKNOWN INDICATION
     Route: 065

REACTIONS (2)
  - Pleurothotonus [Recovering/Resolving]
  - Drug interaction [Unknown]
